FAERS Safety Report 5026571-2 (Version None)
Quarter: 2006Q2

REPORT INFORMATION
  Report Type: 
  Country: None (occurrence: None)
  Receive Date: 20060615
  Receipt Date: 20060423
  Transmission Date: 20061013
  Serious: Yes (Other)
  Sender: FDA-Public Use
  Company Number: US-ROCHE-445526

PATIENT
  Age: 31 Year
  Sex: Female
  Weight: 54.4 kg

DRUGS (6)
  1. PEGASYS [Suspect]
     Indication: HEPATITIS C
     Route: 058
     Dates: start: 20060421
  2. COPEGUS [Suspect]
     Indication: HEPATITIS C
     Dosage: REPORTED AS 2 AM, 2 PM.
     Route: 048
     Dates: start: 20060421
  3. LEXAPRO [Concomitant]
     Indication: DEPRESSION
     Route: 048
  4. MULTIVITAMIN NOS [Concomitant]
     Route: 048
  5. IMITREX [Concomitant]
     Route: 048
  6. VISTARIL [Concomitant]
     Route: 048

REACTIONS (2)
  - DIZZINESS [None]
  - LOSS OF CONSCIOUSNESS [None]
